FAERS Safety Report 6798268-X (Version None)
Quarter: 2010Q2

REPORT INFORMATION
  Report Type: 
  Country: None (occurrence: None)
  Receive Date: 20100623
  Receipt Date: 20100602
  Transmission Date: 20101027
  Serious: Yes (Hospitalization)
  Sender: FDA-Public Use
  Company Number: JPI-P-010951

PATIENT
  Age: 70 Year
  Sex: Female

DRUGS (10)
  1. XYREM [Suspect]
     Indication: CATAPLEXY
     Dosage: 5 GM (5 GM,1 IN 1 D), ORAL ;  4 GM (4 GM, 1 IN 1 D),ORAL
     Route: 048
     Dates: start: 20091212, end: 20100307
  2. XYREM [Suspect]
     Indication: CATAPLEXY
     Dosage: 5 GM (5 GM,1 IN 1 D), ORAL ;  4 GM (4 GM, 1 IN 1 D),ORAL
     Route: 048
     Dates: start: 20100308
  3. SELEGILINE HYDROCHLORIDE [Concomitant]
  4. MODAFINIL [Concomitant]
  5. OLMESARTAN MEDOXOMIL [Concomitant]
  6. TORASEMIDE [Concomitant]
  7. RAMIPRIL [Concomitant]
  8. PANTOPRAZOLE SODIUM [Concomitant]
  9. LEVOTHYROXINE SODIUM [Concomitant]
  10. FOSAVANCE [Concomitant]

REACTIONS (6)
  - ASTHENIA [None]
  - ATRIAL FIBRILLATION [None]
  - DYSPNOEA [None]
  - HYPERHIDROSIS [None]
  - NAUSEA [None]
  - TREMOR [None]
